FAERS Safety Report 23737848 (Version 1)
Quarter: 2024Q2

REPORT INFORMATION
  Report Type: Spontaneous
  Country: CN (occurrence: CN)
  Receive Date: 20240412
  Receipt Date: 20240412
  Transmission Date: 20240716
  Serious: Yes (Hospitalization)
  Sender: FDA-Public Use
  Company Number: CN-Merck Healthcare KGaA-2024017900

PATIENT
  Age: 77 Year
  Sex: Female
  Weight: 55 kg

DRUGS (5)
  1. ERBITUX [Suspect]
     Active Substance: CETUXIMAB
     Indication: Lip squamous cell carcinoma
     Dosage: 300 MG, 2/M, ALONG WITH 0.9 PERCENT SODIUM CHLORIDE INJECTION 500 ML
     Route: 041
     Dates: start: 20240213, end: 20240227
  2. PACLITAXEL [Suspect]
     Active Substance: PACLITAXEL
     Indication: Lip squamous cell carcinoma
     Dosage: 200 MG, DAILY
     Route: 041
     Dates: start: 20240214, end: 20240214
  3. CISPLATIN [Suspect]
     Active Substance: CISPLATIN
     Indication: Lip squamous cell carcinoma
     Dosage: 90 MG, DAILY, 90 MG IVGTT D1
     Route: 041
     Dates: start: 20240214, end: 20240214
  4. CARBOPLATIN [Concomitant]
     Active Substance: CARBOPLATIN
     Indication: Lip squamous cell carcinoma
     Dosage: UNK
  5. DEXAMETHASONE [Concomitant]
     Active Substance: DEXAMETHASONE
     Indication: Product used for unknown indication
     Dosage: UNK

REACTIONS (1)
  - Febrile neutropenia [Recovered/Resolved]

NARRATIVE: CASE EVENT DATE: 20240222
